FAERS Safety Report 6805823-7 (Version None)
Quarter: 2010Q2

REPORT INFORMATION
  Report Type: 
  Country: None (occurrence: None)
  Receive Date: 20100629
  Receipt Date: 20081223
  Transmission Date: 20101027
  Serious: No
  Sender: FDA-Public Use
  Company Number: US-PFIZER INC-2007069251

PATIENT
  Sex: Female

DRUGS (1)
  1. ALPRAZOLAM [Suspect]
     Indication: ANXIETY

REACTIONS (6)
  - ABDOMINAL DISCOMFORT [None]
  - ANXIETY [None]
  - COELIAC DISEASE [None]
  - DYSPEPSIA [None]
  - FLATULENCE [None]
  - MALAISE [None]
